FAERS Safety Report 9076672 (Version 1)
Quarter: 2013Q1

REPORT INFORMATION
  Report Type: Spontaneous
  Country: US (occurrence: US)
  Receive Date: 20130130
  Receipt Date: 20130130
  Transmission Date: 20140127
  Serious: Yes (Hospitalization, Other)
  Sender: FDA-Public Use
  Company Number: PHHY2013US007779

PATIENT
  Age: 36 Year
  Sex: Male

DRUGS (3)
  1. EVEROLIMUS [Suspect]
     Indication: PANCREATIC NEUROENDOCRINE TUMOUR METASTATIC
     Dosage: 10 MG, DAILY
  2. EVEROLIMUS [Suspect]
     Dosage: 5 MG, DAILY
  3. OMEPRAZOLE [Concomitant]
     Dosage: 40 MG, DAILY

REACTIONS (8)
  - Pancreatitis acute [Unknown]
  - Abdominal pain upper [Unknown]
  - Vomiting [Unknown]
  - Hypertriglyceridaemia [Unknown]
  - Rash pustular [Unknown]
  - Fatigue [Unknown]
  - Stomatitis [Unknown]
  - Thrombocytopenia [Unknown]
